FAERS Safety Report 6744620-8 (Version None)
Quarter: 2010Q2

REPORT INFORMATION
  Report Type: 
  Country: None (occurrence: None)
  Receive Date: 20100527
  Receipt Date: 20100525
  Transmission Date: 20101027
  Serious: Yes (Hospitalization)
  Sender: FDA-Public Use
  Company Number: JP-ELI_LILLY_AND_COMPANY-JP201004004536

PATIENT
  Sex: Male
  Weight: 63 kg

DRUGS (17)
  1. ALIMTA [Suspect]
     Indication: NON-SMALL CELL LUNG CANCER
     Dosage: 920 MG, UNKNOWN
     Route: 042
     Dates: start: 20100330, end: 20100330
  2. PANVITAN [Concomitant]
     Indication: PROPHYLAXIS
     Dosage: 1 G, DAILY (1/D)
     Route: 048
     Dates: start: 20100323, end: 20100410
  3. CYANOCOBALAMIN [Concomitant]
     Dosage: 500 UG, DAILY (1/D)
     Route: 030
     Dates: start: 20100323, end: 20100323
  4. OXINORM [Concomitant]
     Indication: PAIN
     Route: 048
     Dates: start: 20091201
  5. OXYCONTIN [Concomitant]
     Dosage: 20 MG, 2/D
     Route: 048
     Dates: start: 20091201
  6. EURODIN [Concomitant]
     Indication: INSOMNIA
     Dosage: 2 MG, UNKNOWN
     Route: 048
     Dates: start: 20091201
  7. NAUZELIN [Concomitant]
     Dosage: 20 MG, DAILY (1/D)
     Route: 048
     Dates: start: 20091201
  8. GASMOTIN [Concomitant]
     Dosage: 5 MG, 2/D
     Route: 048
     Dates: start: 20091201
  9. PROTECADIN [Concomitant]
     Dosage: 10 MG, DAILY (1/D)
     Route: 048
     Dates: start: 20091201
  10. AMLODIN [Concomitant]
     Dosage: 5 MG, DAILY (1/D)
     Route: 048
     Dates: start: 20091201
  11. ASPIRIN [Concomitant]
     Dosage: 100 MG, DAILY (1/D)
     Route: 048
     Dates: start: 20091201
  12. MAGNESIUM OXIDE [Concomitant]
     Dosage: 1.5 G, 3/D
     Route: 048
     Dates: start: 20091201
  13. VASOLAN [Concomitant]
     Dosage: 40 MG, 2/D
     Route: 048
     Dates: start: 20091201
  14. MINIPRESS [Concomitant]
     Dosage: 1 MG, DAILY (1/D)
     Route: 048
     Dates: start: 20091201
  15. LASIX [Concomitant]
     Dosage: 40 MG, DAILY (1/D)
     Route: 048
     Dates: start: 20091201
  16. PROCTOSEDYL [Concomitant]
     Dosage: UNK, DAILY (1/D)
     Route: 054
     Dates: start: 20091201
  17. RENIVACE [Concomitant]
     Dosage: 5 MG, DAILY (1/D)
     Route: 048
     Dates: start: 20091201

REACTIONS (3)
  - DISSEMINATED INTRAVASCULAR COAGULATION [None]
  - NEUTROPHIL COUNT DECREASED [None]
  - PNEUMONIA [None]
